FAERS Safety Report 17370416 (Version 2)
Quarter: 2020Q1

REPORT INFORMATION
  Report Type: Spontaneous
  Country: JP (occurrence: JP)
  Receive Date: 20200205
  Receipt Date: 20200205
  Transmission Date: 20200409
  Serious: Yes (Other)
  Sender: FDA-Public Use
  Company Number: NVSJ2020JP001263

PATIENT
  Age: 76 Year
  Sex: Female
  Weight: 33 kg

DRUGS (8)
  1. ISONIAZID. [Concomitant]
     Active Substance: ISONIAZID
     Indication: CUTANEOUS TUBERCULOSIS
  2. ETHAMBUTOL DIHYDROCHLORIDE [Concomitant]
     Active Substance: ETHAMBUTOL HYDROCHLORIDE
     Indication: DISSEMINATED TUBERCULOSIS
  3. ISONIAZID. [Concomitant]
     Active Substance: ISONIAZID
     Indication: DISSEMINATED TUBERCULOSIS
     Dosage: UNK
     Route: 048
  4. PYRAZINAMIDE. [Concomitant]
     Active Substance: PYRAZINAMIDE
     Indication: DISSEMINATED TUBERCULOSIS
     Dosage: UNK
     Route: 048
  5. PYRAZINAMIDE. [Concomitant]
     Active Substance: PYRAZINAMIDE
     Indication: CUTANEOUS TUBERCULOSIS
  6. RIFAMPICIN [Suspect]
     Active Substance: RIFAMPIN
     Indication: DISSEMINATED TUBERCULOSIS
     Route: 048
  7. RIFAMPICIN [Suspect]
     Active Substance: RIFAMPIN
     Indication: CUTANEOUS TUBERCULOSIS
  8. ETHAMBUTOL DIHYDROCHLORIDE [Concomitant]
     Active Substance: ETHAMBUTOL HYDROCHLORIDE
     Indication: CUTANEOUS TUBERCULOSIS
     Dosage: UNK
     Route: 048

REACTIONS (10)
  - Erythema [Recovering/Resolving]
  - Paradoxical drug reaction [Unknown]
  - Skin mass [Recovering/Resolving]
  - C-reactive protein increased [Unknown]
  - Renal impairment [Unknown]
  - Liver disorder [Unknown]
  - Granulocyte count decreased [Unknown]
  - Hypoalbuminaemia [Unknown]
  - Skin lesion [Recovering/Resolving]
  - Subcutaneous abscess [Recovering/Resolving]
